FAERS Safety Report 17584757 (Version 1)
Quarter: 2020Q1

REPORT INFORMATION
  Report Type: Spontaneous
  Country: JP (occurrence: JP)
  Receive Date: 20200326
  Receipt Date: 20200326
  Transmission Date: 20200409
  Serious: Yes (Other)
  Sender: FDA-Public Use
  Company Number: JP-PFIZER INC-2020125088

PATIENT

DRUGS (1)
  1. RHEUMATREX [Suspect]
     Active Substance: METHOTREXATE SODIUM
     Route: 048

REACTIONS (5)
  - Pneumonia [Unknown]
  - Pneumonia aspiration [Unknown]
  - Interstitial lung disease [Unknown]
  - Productive cough [Unknown]
  - Pyrexia [Unknown]
